FAERS Safety Report 9791797 (Version 2)
Quarter: 2014Q1

REPORT INFORMATION
  Report Type: Spontaneous
  Country: SE (occurrence: SE)
  Receive Date: 20140102
  Receipt Date: 20140317
  Transmission Date: 20141002
  Serious: Yes (Other)
  Sender: FDA-Public Use
  Company Number: SE-JNJFOC-20131217018

PATIENT
  Age: 41 Year
  Sex: Female

DRUGS (6)
  1. XARELTO [Suspect]
     Indication: EMBOLISM VENOUS
     Route: 048
     Dates: start: 20130621
  2. XARELTO [Suspect]
     Indication: DEEP VEIN THROMBOSIS
     Route: 048
     Dates: start: 20130621
  3. TETRALYSAL [Concomitant]
     Route: 065
  4. ORSTANORM [Concomitant]
     Route: 065
  5. ALVEDON [Concomitant]
     Route: 065
  6. IPREN [Concomitant]
     Route: 065

REACTIONS (1)
  - Arthritis [Not Recovered/Not Resolved]
